FAERS Safety Report 5615280-4 (Version None)
Quarter: 2008Q1

REPORT INFORMATION
  Report Type: 
  Country: None (occurrence: None)
  Receive Date: 20080201
  Receipt Date: 20080121
  Transmission Date: 20080703
  Serious: Yes (Disabling, Other)
  Sender: FDA-Public Use
  Company Number: CERZ-1000037

PATIENT
  Age: 66 Year
  Sex: Male
  Weight: 113.4 kg

DRUGS (2)
  1. CEREZYME [Suspect]
     Indication: GAUCHER'S DISEASE
     Dosage: 120 U/KG, ONCE, INTRAVENOUS; 60 U/KG, Q2W, INTRAVENOUS
     Route: 042
     Dates: start: 19970911, end: 20071001
  2. CEREZYME [Suspect]
     Indication: GAUCHER'S DISEASE
     Dosage: 120 U/KG, ONCE, INTRAVENOUS; 60 U/KG, Q2W, INTRAVENOUS
     Route: 042
     Dates: start: 20071109, end: 20071109

REACTIONS (3)
  - BONE INFARCTION [None]
  - DEEP VEIN THROMBOSIS [None]
  - DYSSTASIA [None]
